FAERS Safety Report 25674283 (Version 2)
Quarter: 2025Q3

REPORT INFORMATION
  Report Type: Report from Study
  Country: CA (occurrence: CA)
  Receive Date: 20250813
  Receipt Date: 20250819
  Transmission Date: 20251021
  Serious: Yes (Other)
  Sender: SAMSUNG BIOEPIS
  Company Number: CA-SAMSUNG BIOEPIS-SB-2025-27331

PATIENT
  Age: 40 Year
  Sex: Male

DRUGS (2)
  1. HADLIMA [Suspect]
     Active Substance: ADALIMUMAB-BWWD
     Indication: Colitis ulcerative
     Dosage: 40MG/0.4ML;
     Dates: start: 20250708
  2. FOLIC ACID [Concomitant]
     Active Substance: FOLIC ACID
     Indication: Product used for unknown indication

REACTIONS (5)
  - Dizziness [Unknown]
  - Fatigue [Unknown]
  - Skin reaction [Unknown]
  - Hypersensitivity [Unknown]
  - Swelling face [Unknown]

NARRATIVE: CASE EVENT DATE: 20250806
